FAERS Safety Report 7112172-9 (Version None)
Quarter: 2010Q4

REPORT INFORMATION
  Report Type: 
  Country: None (occurrence: None)
  Receive Date: 20101119
  Receipt Date: 20100201
  Transmission Date: 20110411
  Serious: No
  Sender: FDA-Public Use
  Company Number: A0842356A

PATIENT
  Age: 60 Year
  Sex: Male

DRUGS (2)
  1. AVODART [Suspect]
     Indication: BENIGN PROSTATIC HYPERPLASIA
     Dosage: 1CAP PER DAY
     Route: 048
     Dates: start: 20091221, end: 20100118
  2. CRESTOR [Concomitant]

REACTIONS (2)
  - OEDEMA MOUTH [None]
  - STOMATITIS [None]
